FAERS Safety Report 5353984-1 (Version None)
Quarter: 2007Q2

REPORT INFORMATION
  Report Type: 
  Country: None (occurrence: None)
  Receive Date: 20070612
  Receipt Date: 20070604
  Transmission Date: 20071010
  Serious: Yes (Hospitalization, Other)
  Sender: FDA-Public Use
  Company Number: HQWYE140010AUG04

PATIENT
  Sex: Female
  Weight: 84.9 kg

DRUGS (2)
  1. PREMPRO [Suspect]
     Dosage: UNSPECIFIED
  2. PREMARIN [Suspect]

REACTIONS (1)
  - BREAST CANCER METASTATIC [None]
